FAERS Safety Report 7994083-X (Version None)
Quarter: 2011Q4

REPORT INFORMATION
  Report Type: 
  Country: None (occurrence: None)
  Receive Date: 20111220
  Receipt Date: 20111208
  Transmission Date: 20120403
  Serious: Yes (Other)
  Sender: FDA-Public Use
  Company Number: US-BAYER-2011-040446

PATIENT
  Age: 28 Year
  Sex: Female
  Weight: 74.83 kg

DRUGS (2)
  1. PHENTERMINE [Concomitant]
     Dosage: UNK
     Dates: start: 20061001, end: 20061201
  2. YASMIN [Suspect]
     Indication: CONTRACEPTION
     Dosage: UNK
     Dates: start: 20050101, end: 20070101

REACTIONS (8)
  - ABDOMINAL PAIN [None]
  - ANXIETY [None]
  - BILIARY COLIC [None]
  - DYSPEPSIA [None]
  - CHOLELITHIASIS [None]
  - GENERAL PHYSICAL HEALTH DETERIORATION [None]
  - EMOTIONAL DISTRESS [None]
  - PAIN [None]
